FAERS Safety Report 6822089-2 (Version None)
Quarter: 2010Q3

REPORT INFORMATION
  Report Type: 
  Country: None (occurrence: None)
  Receive Date: 20100708
  Receipt Date: 20100628
  Transmission Date: 20110219
  Serious: Yes (Hospitalization, Other)
  Sender: FDA-Public Use
  Company Number: JP-JNJFOC-20100606274

PATIENT
  Sex: Female

DRUGS (15)
  1. TOPIRAMATE [Suspect]
     Indication: EPILEPSY
     Route: 048
  2. TOPIRAMATE [Suspect]
     Route: 048
  3. TOPIRAMATE [Suspect]
     Route: 048
  4. TOPIRAMATE [Suspect]
     Route: 048
  5. TOPIRAMATE [Suspect]
     Route: 048
  6. TOPIRAMATE [Suspect]
     Route: 048
  7. SERENACE [Concomitant]
     Indication: PRODUCT USED FOR UNKNOWN INDICATION
     Route: 048
  8. L-CARTIN [Concomitant]
     Route: 048
  9. MYOCALM [Concomitant]
     Route: 048
  10. TIZANIDINE HCL [Concomitant]
     Route: 048
  11. ARGININE [Concomitant]
     Route: 050
  12. CARNITINE HYDROCHLORIDE [Concomitant]
     Route: 048
  13. COENZYME Q10 [Concomitant]
     Route: 048
  14. L-ARGININE [Concomitant]
     Route: 048
  15. UNKNOWN MEDICATION [Concomitant]
     Route: 048

REACTIONS (5)
  - ALTERED STATE OF CONSCIOUSNESS [None]
  - DYSSTASIA [None]
  - GAIT DISTURBANCE [None]
  - HYPERAMMONAEMIA [None]
  - URINARY INCONTINENCE [None]
